FAERS Safety Report 8313927-5 (Version None)
Quarter: 2012Q2

REPORT INFORMATION
  Report Type: 
  Country: None (occurrence: None)
  Receive Date: 20120426
  Receipt Date: 20120426
  Transmission Date: 20120825
  Serious: Yes (Life-Threatening, Other)
  Sender: FDA-Public Use
  Company Number: None

PATIENT
  Age: 73 Year
  Sex: Female
  Weight: 74.842 kg

DRUGS (2)
  1. LIVALO [Suspect]
     Indication: BLOOD CHOLESTEROL INCREASED
     Dosage: 1 TAB
     Route: 048
     Dates: start: 20120220, end: 20120411
  2. LIVALO [Concomitant]

REACTIONS (4)
  - ASTHENIA [None]
  - CHROMATURIA [None]
  - BACK PAIN [None]
  - MYALGIA [None]
